FAERS Safety Report 10213732 (Version 2)
Quarter: 2014Q2

REPORT INFORMATION
  Report Type: Spontaneous
  Country: US (occurrence: None)
  Receive Date: 20140529
  Receipt Date: 20140624
  Transmission Date: 20141212
  Serious: Yes (Other)
  Sender: FDA-Public Use
  Company Number: 20140278

PATIENT
  Age: 49 Year
  Sex: Female

DRUGS (9)
  1. INJECTAFER [Suspect]
     Indication: BLOOD IRON DECREASED
     Route: 042
     Dates: start: 20140409, end: 20140416
  2. ADDERALL (AMPHETAMINE AND DEXTROAMPHETAMINE) [Concomitant]
  3. ADDERALL XR (AMPHETAMINE, DEXTROAMPHETAMINE MIXED SALTS) [Concomitant]
  4. OXYCONTIN (OXYCODDONE) [Concomitant]
  5. PERCOCET (OXYCODONE AND ACETAMINOPHEN) [Concomitant]
  6. PREMARIN (CONJUGATED ESTROGENS) [Concomitant]
  7. PROZAC (FLUOXETINE) [Concomitant]
  8. VASOTEC (ENALAPRIL) [Concomitant]
  9. LEVOTHYROXINE [Concomitant]

REACTIONS (2)
  - Nephrolithiasis [None]
  - Therapeutic response decreased [None]
